FAERS Safety Report 4342071-7 (Version None)
Quarter: 2004Q2

REPORT INFORMATION
  Report Type: 
  Country: None (occurrence: None)
  Receive Date: 20040420
  Receipt Date: 20031110
  Transmission Date: 20050107
  Serious: Yes (Death, Other)
  Sender: FDA-Public Use
  Company Number: JP-MERCK-0311USA01889

PATIENT
  Age: 61 Year
  Sex: Male

DRUGS (6)
  1. [THERAPY UNSPECIFIED] [Concomitant]
     Route: 065
  2. [THERAPY UNSPECIFIED] [Concomitant]
     Route: 065
  3. ZITHROMAX [Concomitant]
     Indication: INFECTION
     Route: 048
     Dates: start: 20031031, end: 20031102
  4. PEPCID RPD [Suspect]
     Indication: GASTROINTESTINAL HAEMORRHAGE
     Route: 048
     Dates: start: 20031101, end: 20031106
  5. LACTULOSE [Concomitant]
     Indication: RENAL DISORDER
     Route: 048
     Dates: start: 20031022, end: 20031103
  6. MAGNESIUM OXIDE [Concomitant]
     Indication: CONSTIPATION
     Route: 065
     Dates: start: 20031022, end: 20031104

REACTIONS (6)
  - BONE MARROW DEPRESSION [None]
  - DISSEMINATED INTRAVASCULAR COAGULATION [None]
  - HEPATITIS FULMINANT [None]
  - MULTI-ORGAN FAILURE [None]
  - SEPSIS [None]
  - WHITE BLOOD CELL COUNT DECREASED [None]
